FAERS Safety Report 5951963-4 (Version None)
Quarter: 2008Q4

REPORT INFORMATION
  Report Type: 
  Country: None (occurrence: None)
  Receive Date: 20081113
  Receipt Date: 20071004
  Transmission Date: 20090506
  Serious: No
  Sender: FDA-Public Use
  Company Number: A0686133A

PATIENT
  Age: 67 Year
  Sex: Male

DRUGS (5)
  1. COREG [Suspect]
     Dosage: 25MG TWICE PER DAY
     Route: 048
     Dates: start: 20050101
  2. LIPITOR [Concomitant]
  3. ZETIA [Concomitant]
  4. SYNTHROID [Concomitant]
  5. ACIPHEX [Concomitant]

REACTIONS (2)
  - ASTHENIA [None]
  - LETHARGY [None]
